FAERS Safety Report 5076219-6 (Version None)
Quarter: 2006Q3

REPORT INFORMATION
  Report Type: 
  Country: None (occurrence: None)
  Receive Date: 20060807
  Receipt Date: 20060726
  Transmission Date: 20061208
  Serious: Yes (Other)
  Sender: FDA-Public Use
  Company Number: US200607004051

PATIENT
  Age: 54 Year
  Sex: Female

DRUGS (3)
  1. CYMBALTA [Suspect]
     Indication: DEPRESSION
     Dosage: 20 MG, ORAL
     Route: 048
     Dates: start: 20060401, end: 20060401
  2. ABILIFY [Concomitant]
  3. CELEXA [Concomitant]

REACTIONS (12)
  - COMA HEPATIC [None]
  - COMPLEX PARTIAL SEIZURES [None]
  - COMPLICATIONS OF TRANSPLANTED LIVER [None]
  - CONDITION AGGRAVATED [None]
  - DEPRESSION [None]
  - DRUG TOXICITY [None]
  - HEPATIC FAILURE [None]
  - HEPATITIS C VIRUS [None]
  - IMPAIRED SELF-CARE [None]
  - INTESTINAL ADHESION LYSIS [None]
  - REFUSAL OF TREATMENT BY PATIENT [None]
  - TRANSPLANT REJECTION [None]
